FAERS Safety Report 7638296-5 (Version None)
Quarter: 2011Q3

REPORT INFORMATION
  Report Type: 
  Country: None (occurrence: None)
  Receive Date: 20110727
  Receipt Date: 20110727
  Transmission Date: 20111222
  Serious: Yes (Other)
  Sender: FDA-Public Use
  Company Number: None

PATIENT
  Sex: Female
  Weight: 41.73 kg

DRUGS (1)
  1. ROGAINE [Suspect]
     Indication: ANDROGENETIC ALOPECIA
     Dosage: AMOUNT SUGGESTED ON BOX
     Route: 061
     Dates: start: 20100401, end: 20110701

REACTIONS (1)
  - HAIR GROWTH ABNORMAL [None]
